FAERS Safety Report 11230976 (Version 1)
Quarter: 2015Q3

REPORT INFORMATION
  Report Type: Spontaneous
  Country: US (occurrence: US)
  Receive Date: 20150701
  Receipt Date: 20150701
  Transmission Date: 20151125
  Serious: No
  Sender: FDA-Public Use
  Company Number: US-BIOGENIDEC-2015BI090587

PATIENT
  Sex: Female

DRUGS (1)
  1. TECFIDERA [Suspect]
     Active Substance: DIMETHYL FUMARATE
     Indication: MULTIPLE SCLEROSIS
     Route: 048
     Dates: start: 20130610

REACTIONS (5)
  - Pruritus [Unknown]
  - Urticaria [Unknown]
  - Rash generalised [Unknown]
  - Multiple sclerosis relapse [Unknown]
  - Swelling [Unknown]

NARRATIVE: CASE EVENT DATE: 2015
